FAERS Safety Report 5804701-X (Version None)
Quarter: 2008Q3

REPORT INFORMATION
  Report Type: 
  Country: None (occurrence: None)
  Receive Date: 20080709
  Receipt Date: 20080626
  Transmission Date: 20090109
  Serious: Yes (Other)
  Sender: FDA-Public Use
  Company Number: US-MERCK-0807USA00320

PATIENT
  Age: 79 Year
  Sex: Female

DRUGS (6)
  1. PEPCID RPD [Suspect]
     Route: 048
     Dates: end: 20080601
  2. SERENACE [Suspect]
     Route: 065
  3. HYPEN [Suspect]
     Route: 065
  4. EURODIN [Concomitant]
     Route: 065
  5. GASLON [Concomitant]
     Route: 065
  6. ARIXTRA [Concomitant]
     Route: 065

REACTIONS (1)
  - HAEMOLYTIC ANAEMIA [None]
